FAERS Safety Report 9664153 (Version 2)
Quarter: 2013Q4

REPORT INFORMATION
  Report Type: Spontaneous
  Country: DE (occurrence: DE)
  Receive Date: 20131101
  Receipt Date: 20131202
  Transmission Date: 20140711
  Serious: Yes (Hospitalization)
  Sender: FDA-Public Use
  Company Number: DE-BAYER-2013-132298

PATIENT
  Age: 81 Year
  Sex: Male
  Weight: 105 kg

DRUGS (1)
  1. AVALOX [Suspect]

REACTIONS (2)
  - Muscular weakness [None]
  - Dyspnoea [None]
